FAERS Safety Report 5593259-9 (Version None)
Quarter: 2008Q1

REPORT INFORMATION
  Report Type: 
  Country: None (occurrence: None)
  Receive Date: 20080114
  Receipt Date: 20080110
  Transmission Date: 20080703
  Serious: Yes (Hospitalization)
  Sender: FDA-Public Use
  Company Number: GRT 2007-14482

PATIENT
  Age: 63 Year
  Sex: Female
  Weight: 79 kg

DRUGS (8)
  1. LIDOCAINE [Suspect]
     Indication: NEURALGIA
     Dosage: 4 PATCHES A DAY
     Dates: start: 20070920, end: 20071021
  2. PREGABALIN [Suspect]
     Indication: NEURALGIA
     Dosage: 600MG/DAY
     Dates: start: 20070822, end: 20071021
  3. BISOCARD [Concomitant]
  4. MOLSIDOMIN [Concomitant]
  5. ACARD [Concomitant]
  6. INSULIN MIXTARD HUMAN [Concomitant]
  7. ACETAMINOPHEN [Concomitant]
  8. TERTENSIF [Concomitant]

REACTIONS (4)
  - ARTERIOSCLEROSIS [None]
  - DIABETES MELLITUS [None]
  - PAIN IN EXTREMITY [None]
  - SKIN ULCER [None]
